FAERS Safety Report 6035367-4 (Version None)
Quarter: 2009Q1

REPORT INFORMATION
  Report Type: 
  Country: None (occurrence: None)
  Receive Date: 20090109
  Receipt Date: 20090109
  Transmission Date: 20090719
  Serious: Yes (Disabling)
  Sender: FDA-Public Use
  Company Number: None

PATIENT
  Sex: Female

DRUGS (5)
  1. FOSAMAX [Suspect]
     Indication: OSTEOPENIA
     Dosage: 10 MG DAILY ORAL
     Route: 048
     Dates: start: 19990201, end: 20070201
  2. FOSAMAX [Suspect]
     Dosage: 70 MG WEEKLY ORAL
     Route: 048
  3. LIPITOR [Concomitant]
  4. DIOVAN [Concomitant]
  5. ACIPHEX [Concomitant]

REACTIONS (3)
  - JAW DISORDER [None]
  - OSTEOSCLEROSIS [None]
  - PAIN [None]
